FAERS Safety Report 10669125 (Version 2)
Quarter: 2015Q1

REPORT INFORMATION
  Report Type: Spontaneous
  Country: NL (occurrence: NL)
  Receive Date: 20141222
  Receipt Date: 20150122
  Transmission Date: 20150720
  Serious: Yes (Other)
  Sender: FDA-Public Use
  Company Number: NL-TEVA-530058ISR

PATIENT
  Age: 63 Year
  Sex: Male
  Weight: 85 kg

DRUGS (4)
  1. DEXAMETHASON DINATRIUMFOSFAAT INJVLST 5MG/ML [Concomitant]
     Dosage: 10 MG EVERY 3 WEEKS
     Route: 030
     Dates: start: 20141113, end: 201412
  2. OXALIPLATINE INFUUS 1MG/MG [Suspect]
     Active Substance: OXALIPLATIN
     Indication: OESOPHAGEAL CARCINOMA
     Dosage: EVERY 3 WEEKS 200 MG
     Route: 042
     Dates: start: 20141113
  3. ONDANSETRON INJVLST 2MG/ML [Concomitant]
     Dosage: 8 MG EVERY 3 WEEKS
     Route: 030
     Dates: start: 20141113, end: 201412
  4. CAPECITABINE TABLET FO 300MG [Suspect]
     Active Substance: CAPECITABINE
     Indication: OESOPHAGEAL CARCINOMA
     Dosage: 1300 MG
     Route: 048
     Dates: start: 20141113

REACTIONS (2)
  - Muscle spasms [Recovered/Resolved]
  - Laryngospasm [Recovered/Resolved]

NARRATIVE: CASE EVENT DATE: 20141202
